FAERS Safety Report 8018166-3 (Version None)
Quarter: 2012Q1

REPORT INFORMATION
  Report Type: 
  Country: None (occurrence: None)
  Receive Date: 20120103
  Receipt Date: 20111223
  Transmission Date: 20120608
  Serious: Yes (Other)
  Sender: FDA-Public Use
  Company Number: US-US-EMD SERONO, INC.-7085175

PATIENT
  Sex: Female
  Weight: 85 kg

DRUGS (5)
  1. CELEXA [Concomitant]
     Indication: DEPRESSION
  2. NEURONTIN [Concomitant]
     Indication: PAIN
  3. TOPAMAX [Concomitant]
     Indication: HEADACHE
  4. REBIF [Suspect]
     Indication: MULTIPLE SCLEROSIS
     Dates: start: 20100318, end: 20110824
  5. REBIF [Suspect]
     Route: 058

REACTIONS (4)
  - FATIGUE [None]
  - NAUSEA [None]
  - PARATHYROID TUMOUR [None]
  - GASTROINTESTINAL PAIN [None]
